FAERS Safety Report 22086344 (Version 2)
Quarter: 2023Q2

REPORT INFORMATION
  Report Type: Spontaneous
  Country: JP (occurrence: JP)
  Receive Date: 20230310
  Receipt Date: 20230414
  Transmission Date: 20230721
  Serious: Yes (Other)
  Sender: FDA-Public Use
  Company Number: JP-MALLINCKRODT-MNK202300284

PATIENT
  Age: 70 Year
  Sex: Male

DRUGS (5)
  1. OFIRMEV [Suspect]
     Active Substance: ACETAMINOPHEN
     Indication: Kounis syndrome
     Route: 042
  2. OFIRMEV [Suspect]
     Active Substance: ACETAMINOPHEN
     Indication: Analgesic therapy
  3. CELECOXIB [Suspect]
     Active Substance: CELECOXIB
     Indication: Kounis syndrome
     Dosage: UNKNOWN
  4. HEPARIN [Suspect]
     Active Substance: HEPARIN SODIUM
     Indication: Kounis syndrome
     Dosage: UNKNOWN
  5. HEPARIN [Suspect]
     Active Substance: HEPARIN SODIUM

REACTIONS (2)
  - Kounis syndrome [Recovered/Resolved]
  - Heparin-induced thrombocytopenia [Recovered/Resolved]
